FAERS Safety Report 15216832 (Version 4)
Quarter: 2019Q1

REPORT INFORMATION
  Report Type: Report from Study
  Country: US (occurrence: US)
  Receive Date: 20180730
  Receipt Date: 20190124
  Transmission Date: 20190417
  Serious: Yes (Hospitalization, Other)
  Sender: FDA-Public Use
  Company Number: US-ACTELION-A-NJ2018-176230

PATIENT
  Age: 79 Year
  Sex: Female
  Weight: 54.88 kg

DRUGS (3)
  1. UPTRAVI [Suspect]
     Active Substance: SELEXIPAG
     Dosage: 600 MCG, BID
     Route: 048
  2. UPTRAVI [Suspect]
     Active Substance: SELEXIPAG
     Indication: PULMONARY ARTERIAL HYPERTENSION
     Dosage: 200 MCG, BID
     Route: 048
     Dates: end: 20180821
  3. DILTIAZEM. [Concomitant]
     Active Substance: DILTIAZEM

REACTIONS (9)
  - Back pain [Not Recovered/Not Resolved]
  - Spinal fracture [Unknown]
  - Osteoporosis [Unknown]
  - Therapy cessation [Recovered/Resolved]
  - Pain in extremity [Unknown]
  - Rib fracture [Unknown]
  - Myalgia [Not Recovered/Not Resolved]
  - Unevaluable event [Unknown]
  - Hallucination [Unknown]
